FAERS Safety Report 7391031-0 (Version None)
Quarter: 2011Q1

REPORT INFORMATION
  Report Type: 
  Country: None (occurrence: None)
  Receive Date: 20110324
  Receipt Date: 20110315
  Transmission Date: 20110831
  Serious: Yes (Hospitalization)
  Sender: FDA-Public Use
  Company Number: 2011AC000023

PATIENT
  Age: 46 Year
  Sex: Male
  Weight: 113.3993 kg

DRUGS (75)
  1. DIAZEPAM [Concomitant]
  2. GEMFIBROZIL [Concomitant]
  3. ULTRAM [Concomitant]
  4. LOPID [Concomitant]
  5. ATROVENT [Concomitant]
  6. REGLAN [Concomitant]
  7. DEMEROL [Concomitant]
  8. OXYGEN [Concomitant]
  9. LIPITOR [Concomitant]
  10. DEPAKOTE [Concomitant]
  11. NEXIUM [Concomitant]
  12. PALGIC [Concomitant]
  13. LORATADINE [Concomitant]
  14. FLUOXETINE [Concomitant]
  15. CEPHALEXIN [Concomitant]
  16. MINOCYCLINE [Concomitant]
  17. NOVOLOG [Concomitant]
  18. ACETAMINOPHEN [Concomitant]
  19. PREVACID [Concomitant]
  20. CARVEDILOL [Concomitant]
  21. ALTACE [Concomitant]
  22. RAMIPRIL [Concomitant]
  23. INSULIN [Concomitant]
  24. AZMACORT [Concomitant]
  25. CLARINEX [Concomitant]
  26. PREVACID [Concomitant]
  27. NAPROXEN [Concomitant]
  28. DIGOXIN [Suspect]
     Dosage: QD; PO
     Route: 048
     Dates: start: 20030825, end: 20060901
  29. VICODIN [Concomitant]
  30. ACTOS [Concomitant]
  31. ADVAIR HFA [Concomitant]
  32. GABAPENTIN [Concomitant]
  33. BENADRYL [Concomitant]
  34. PLAVIX [Concomitant]
  35. XENAZINE [Concomitant]
  36. FUROSEMIDE [Concomitant]
  37. PROZAC [Concomitant]
  38. PROTONIX [Concomitant]
  39. MAXAIR [Concomitant]
  40. CIPROFLOXACIN [Concomitant]
  41. METOCLOPRAMIDE [Concomitant]
  42. LOTENSIN [Concomitant]
  43. TEQUIN [Concomitant]
  44. ERYTHROMYCIN [Concomitant]
  45. ZOLPIDEM [Concomitant]
  46. HFA [Concomitant]
  47. LEVEMIR [Concomitant]
  48. ZOFRAN [Concomitant]
  49. LORCET-HD [Concomitant]
  50. ASPIRIN [Concomitant]
  51. HYDROCODONE [Concomitant]
  52. NITROGLYCERIN [Concomitant]
  53. TRAMADOL [Concomitant]
  54. LOVASTATIN [Concomitant]
  55. LEVAQUIN [Concomitant]
  56. FLOMAX [Concomitant]
  57. SIMVASTATIN [Concomitant]
  58. XOPENEX [Concomitant]
  59. PHENERGAN HCL [Concomitant]
  60. TRAZODONE [Concomitant]
  61. PHENAZOPYRIDINE HCL TAB [Concomitant]
  62. DICLOFENAC [Concomitant]
  63. NASONEX [Concomitant]
  64. DETROL [Concomitant]
  65. MELOXICAM [Concomitant]
  66. DUONEB [Concomitant]
  67. DOXYCYCLINE [Concomitant]
  68. PRAVACHOL [Concomitant]
  69. SEPTRA [Concomitant]
  70. VESICARE [Concomitant]
  71. ALBUTEROL [Concomitant]
  72. LOTREL [Concomitant]
  73. AMBIEN [Concomitant]
  74. DILAUDID [Concomitant]
  75. NARCAN [Concomitant]

REACTIONS (64)
  - PAIN IN EXTREMITY [None]
  - BURNING SENSATION [None]
  - BACK PAIN [None]
  - INTENTIONAL OVERDOSE [None]
  - CHRONIC OBSTRUCTIVE PULMONARY DISEASE [None]
  - GASTRITIS [None]
  - PERIPHERAL ARTERIAL OCCLUSIVE DISEASE [None]
  - DYSPHONIA [None]
  - HEADACHE [None]
  - URINARY TRACT INFECTION [None]
  - AMNESIA [None]
  - RHONCHI [None]
  - MYOCARDIAL ISCHAEMIA [None]
  - CHEST PAIN [None]
  - CARDIOACTIVE DRUG LEVEL BELOW THERAPEUTIC [None]
  - OTITIS EXTERNA [None]
  - URINARY RETENTION [None]
  - CARDIOMEGALY [None]
  - COUGH [None]
  - DIASTOLIC DYSFUNCTION [None]
  - RHINITIS ALLERGIC [None]
  - FAECES DISCOLOURED [None]
  - CARBUNCLE [None]
  - WHEEZING [None]
  - RESPIRATORY DISTRESS [None]
  - DIZZINESS [None]
  - BLOOD PRESSURE SYSTOLIC DECREASED [None]
  - CONDITION AGGRAVATED [None]
  - DEPRESSION [None]
  - PROSTATITIS [None]
  - MUSCULOSKELETAL PAIN [None]
  - CHEST DISCOMFORT [None]
  - CHEST X-RAY NORMAL [None]
  - HYPOAESTHESIA [None]
  - WEIGHT DECREASED [None]
  - DEPRESSION SUICIDAL [None]
  - UPPER RESPIRATORY TRACT INFECTION [None]
  - BLOOD PRESSURE DIASTOLIC INCREASED [None]
  - CEREBRAL MICROANGIOPATHY [None]
  - DYSURIA [None]
  - FALL [None]
  - ARTHRALGIA [None]
  - BRONCHITIS [None]
  - ELECTROCARDIOGRAM QT PROLONGED [None]
  - DIABETES MELLITUS INADEQUATE CONTROL [None]
  - INJURY [None]
  - SINUS CONGESTION [None]
  - DYSPNOEA EXERTIONAL [None]
  - ASTHMA [None]
  - DYSKINESIA [None]
  - DIABETIC NEUROPATHY [None]
  - NIGHT SWEATS [None]
  - ESCHERICHIA TEST POSITIVE [None]
  - PARAESTHESIA [None]
  - PHARYNGITIS [None]
  - GASTROENTERITIS [None]
  - NASOPHARYNGITIS [None]
  - INFLUENZA LIKE ILLNESS [None]
  - NAUSEA [None]
  - BLOOD GLUCOSE INCREASED [None]
  - GRIMACING [None]
  - DYSARTHRIA [None]
  - BALANCE DISORDER [None]
  - ERECTILE DYSFUNCTION [None]
